FAERS Safety Report 9614639 (Version 1)
Quarter: 2013Q4

REPORT INFORMATION
  Report Type: Other
  Country: FR (occurrence: FR)
  Receive Date: 20131011
  Receipt Date: 20131011
  Transmission Date: 20140711
  Serious: Yes (Hospitalization, Other)
  Sender: FDA-Public Use
  Company Number: FR-MPIJNJ-2013JNJ000473

PATIENT
  Sex: 0

DRUGS (3)
  1. VELCADE [Suspect]
     Indication: PLASMA CELL MYELOMA
     Dosage: 1.3 MG/M2, UNK
     Route: 042
     Dates: start: 20120221, end: 20120628
  2. VELCADE [Suspect]
     Dosage: 1 UNK, UNK
     Route: 058
  3. DEXAMETHASONE [Concomitant]
     Indication: PLASMA CELL MYELOMA
     Dosage: UNK

REACTIONS (5)
  - Eye disorder [Unknown]
  - Bronchial disorder [Unknown]
  - Neuropathy peripheral [Unknown]
  - Disease progression [Unknown]
  - Sepsis [Unknown]
